FAERS Safety Report 4541404-6 (Version None)
Quarter: 2004Q4

REPORT INFORMATION
  Report Type: 
  Country: None (occurrence: None)
  Receive Date: 20041229
  Receipt Date: 20041221
  Transmission Date: 20050328
  Serious: Yes (Life-Threatening, Hospitalization, Disabling)
  Sender: FDA-Public Use
  Company Number: US-MERCK-0412USA02651

PATIENT
  Age: 69 Year
  Sex: Male

DRUGS (1)
  1. VIOXX [Suspect]
     Indication: ARTHRITIS
     Route: 048
     Dates: start: 20000830, end: 20040930

REACTIONS (4)
  - FALL [None]
  - HEMIPARESIS [None]
  - HYDROCEPHALUS [None]
  - NERVOUS SYSTEM DISORDER [None]
